FAERS Safety Report 5838399-1 (Version None)
Quarter: 2008Q3

REPORT INFORMATION
  Report Type: 
  Country: None (occurrence: None)
  Receive Date: 20080808
  Receipt Date: 20080808
  Transmission Date: 20090109
  Serious: Yes (Death)
  Sender: FDA-Public Use
  Company Number: None

PATIENT
  Age: 54 Year
  Sex: Female
  Weight: 102.0593 kg

DRUGS (2)
  1. HEPARIN [Suspect]
     Indication: CATHETERISATION CARDIAC
     Dosage: 24 HOURS IV
     Route: 042
     Dates: start: 20080430, end: 20080501
  2. HEPARIN [Suspect]
     Indication: CATHETERISATION CARDIAC
     Dosage: 24 HOURS IV
     Route: 042
     Dates: start: 20080618, end: 20080619

REACTIONS (4)
  - EPISTAXIS [None]
  - HEADACHE [None]
  - MOUTH HAEMORRHAGE [None]
  - VISION BLURRED [None]
